FAERS Safety Report 15269502 (Version 3)
Quarter: 2019Q1

REPORT INFORMATION
  Report Type: Spontaneous
  Country: JP (occurrence: JP)
  Receive Date: 20180813
  Receipt Date: 20190222
  Transmission Date: 20190417
  Serious: Yes (Life-Threatening)
  Sender: FDA-Public Use
  Company Number: JP-SUN PHARMACEUTICAL INDUSTRIES LTD-2018R1-181153

PATIENT
  Age: 82 Year
  Sex: Female

DRUGS (3)
  1. TRICHLORMETHIAZIDE [Suspect]
     Active Substance: TRICHLORMETHIAZIDE
     Indication: CARDIAC FAILURE ACUTE
     Dosage: 1 MILLIGRAM, DAILY
     Route: 065
  2. ISOSORBIDE. [Suspect]
     Active Substance: ISOSORBIDE
     Indication: CARDIAC FAILURE ACUTE
     Dosage: UNK
     Route: 065
  3. IMIDAPRIL [Suspect]
     Active Substance: IMIDAPRIL
     Indication: CARDIAC FAILURE ACUTE
     Dosage: 2.5 MILLIGRAM, DAILY
     Route: 065

REACTIONS (1)
  - Drug ineffective [Unknown]
